FAERS Safety Report 7219294-2 (Version None)
Quarter: 2011Q1

REPORT INFORMATION
  Report Type: 
  Country: None (occurrence: None)
  Receive Date: 20110111
  Receipt Date: 20110103
  Transmission Date: 20110831
  Serious: No
  Sender: FDA-Public Use
  Company Number: US-PFIZER INC-2011001828

PATIENT
  Sex: Male

DRUGS (2)
  1. CAMPTOSAR [Suspect]
  2. ERBITUX [Suspect]
     Dosage: 500 MG, UNK
     Route: 042

REACTIONS (1)
  - DIARRHOEA [None]
